FAERS Safety Report 14776824 (Version 1)
Quarter: 2018Q2

REPORT INFORMATION
  Report Type: Spontaneous
  Country: US (occurrence: US)
  Receive Date: 20180419
  Receipt Date: 20180419
  Transmission Date: 20180711
  Serious: No
  Sender: FDA-Public Use
  Company Number: US-009507513-1804USA007491

PATIENT
  Sex: Female

DRUGS (1)
  1. JANUVIA [Suspect]
     Active Substance: SITAGLIPTIN PHOSPHATE
     Dosage: ONE TABLET/ ONCE A DAY IN AM
     Route: 048
     Dates: start: 2017

REACTIONS (3)
  - Tooth injury [Not Recovered/Not Resolved]
  - Wisdom teeth removal [Not Recovered/Not Resolved]
  - Road traffic accident [Not Recovered/Not Resolved]

NARRATIVE: CASE EVENT DATE: 201801
